FAERS Safety Report 9538349 (Version 1)
Quarter: 2013Q3

REPORT INFORMATION
  Report Type: Spontaneous
  Country: IL (occurrence: IL)
  Receive Date: 20130920
  Receipt Date: 20130920
  Transmission Date: 20140515
  Serious: Yes (Life-Threatening)
  Sender: FDA-Public Use
  Company Number: IL-CELGENEUS-082-C4047-13092539

PATIENT
  Age: 70 Year
  Sex: Female

DRUGS (1)
  1. CC-4047 [Suspect]
     Indication: PLASMA CELL MYELOMA
     Dosage: 3 MILLIGRAM
     Route: 048

REACTIONS (4)
  - Arrhythmia [Unknown]
  - Venous thrombosis [Unknown]
  - Loss of consciousness [Unknown]
  - Oral lichen planus [Unknown]
